FAERS Safety Report 23154782 (Version 2)
Quarter: 2023Q4

REPORT INFORMATION
  Report Type: Report from Study
  Country: US (occurrence: US)
  Receive Date: 20231107
  Receipt Date: 20231113
  Transmission Date: 20240110
  Serious: Yes (Other)
  Sender: FDA-Public Use
  Company Number: US-002147023-NVSC2023US235266

PATIENT
  Age: 8 Year
  Sex: Male

DRUGS (2)
  1. PROMACTA [Suspect]
     Active Substance: ELTROMBOPAG OLAMINE
     Indication: Anaemia
     Dosage: 62.5 MG, DAILY
     Route: 048
     Dates: start: 20201127
  2. PROMACTA [Suspect]
     Active Substance: ELTROMBOPAG OLAMINE
     Dosage: 75 MG
     Route: 048
     Dates: start: 20210111

REACTIONS (1)
  - Cytogenetic abnormality [Recovered/Resolved]

NARRATIVE: CASE EVENT DATE: 20211123
